FAERS Safety Report 22527742 (Version 4)
Quarter: 2024Q1

REPORT INFORMATION
  Report Type: Report from Study
  Country: US (occurrence: US)
  Receive Date: 20230606
  Receipt Date: 20240102
  Transmission Date: 20240410
  Serious: No
  Sender: FDA-Public Use
  Company Number: US-002147023-NVSC2023US129089

PATIENT
  Sex: Female

DRUGS (2)
  1. PROMACTA [Suspect]
     Active Substance: ELTROMBOPAG OLAMINE
     Indication: Immune thrombocytopenia
     Dosage: 50 MG, QD
     Route: 048
  2. PROMACTA [Suspect]
     Active Substance: ELTROMBOPAG OLAMINE
     Dosage: 12.5 MG, QD
     Route: 048

REACTIONS (9)
  - Haemoptysis [Unknown]
  - Platelet count abnormal [Unknown]
  - Glossodynia [Unknown]
  - Myalgia [Unknown]
  - Platelet count increased [Unknown]
  - Platelet count decreased [Unknown]
  - Nausea [Unknown]
  - Oropharyngeal pain [Unknown]
  - Investigation abnormal [Unknown]
